FAERS Safety Report 8787439 (Version 1)
Quarter: 2012Q4

REPORT INFORMATION
  Report Type: Report from Study
  Country: US (occurrence: US)
  Receive Date: 20120914
  Receipt Date: 20120914
  Transmission Date: 20130627
  Serious: No
  Sender: FDA-Public Use
  Company Number: US-VERTEX PHARMACEUTICAL INC.-AE-2012-009856

PATIENT
  Age: 56 Year
  Sex: Female

DRUGS (4)
  1. INCIVEK [Suspect]
     Indication: HEPATITIS C
     Route: 048
  2. NEXIUM [Concomitant]
  3. SELENIUM [Concomitant]
  4. MULTIVITAMIN TAB ESSENTIAL [Concomitant]

REACTIONS (2)
  - Pyrexia [Recovered/Resolved]
  - Faeces discoloured [Unknown]
